FAERS Safety Report 4356142-2 (Version None)
Quarter: 2004Q2

REPORT INFORMATION
  Report Type: 
  Country: None (occurrence: None)
  Receive Date: 20040506
  Receipt Date: 20040428
  Transmission Date: 20050107
  Serious: Yes (Life-Threatening, Hospitalization)
  Sender: FDA-Public Use
  Company Number: 2004210214JP

PATIENT
  Age: 46 Year
  Sex: Female
  Weight: 53 kg

DRUGS (2)
  1. AZULFIDINE [Suspect]
     Indication: RHEUMATOID ARTHRITIS
     Dosage: 500 MG, BID, ORAL
     Route: 048
     Dates: start: 20040226, end: 20040406
  2. LOXONIN (LOXOPROFEN SOIDUM) [Suspect]
     Dosage: 120 MG, BID, ORAL
     Route: 048
     Dates: start: 20040329, end: 20040406

REACTIONS (4)
  - HYPERSENSITIVITY [None]
  - LIVER DISORDER [None]
  - PYREXIA [None]
  - SPLENOMEGALY [None]
